FAERS Safety Report 8553975-3 (Version None)
Quarter: 2012Q3

REPORT INFORMATION
  Report Type: 
  Country: None (occurrence: None)
  Receive Date: 20120731
  Receipt Date: 20120716
  Transmission Date: 20120928
  Serious: Yes (Other)
  Sender: FDA-Public Use
  Company Number: BR-WATSON-2012-12992

PATIENT
  Age: 47 Year
  Sex: Male

DRUGS (2)
  1. FLUVOXAMINE MALEATE [Suspect]
     Indication: DEPRESSION
     Dosage: 200 MG, DAILY
     Route: 065
  2. BROMOPRIDE [Suspect]
     Indication: DYSPEPSIA
     Dosage: 10 MG, Q8H
     Route: 065

REACTIONS (3)
  - AKATHISIA [None]
  - MALAISE [None]
  - DRUG INTERACTION [None]
